FAERS Safety Report 6236692-4 (Version None)
Quarter: 2009Q2

REPORT INFORMATION
  Report Type: 
  Country: None (occurrence: None)
  Receive Date: 20090619
  Receipt Date: 20090310
  Transmission Date: 20091009
  Serious: No
  Sender: FDA-Public Use
  Company Number: US-ASTRAZENECA-2009UW06236

PATIENT
  Age: 86 Year
  Sex: Male

DRUGS (3)
  1. ATACAND [Suspect]
     Dosage: 8-16 MG
     Route: 048
  2. METOPROLOL SUCCINATE [Concomitant]
  3. GLUCOVANCE [Concomitant]

REACTIONS (1)
  - BLOOD GLUCOSE INCREASED [None]
